FAERS Safety Report 6858264-0 (Version None)
Quarter: 2010Q3

REPORT INFORMATION
  Report Type: 
  Country: None (occurrence: None)
  Receive Date: 20100719
  Receipt Date: 20080204
  Transmission Date: 20110219
  Serious: No
  Sender: FDA-Public Use
  Company Number: US-PFIZER INC-2008012186

PATIENT
  Sex: Male
  Weight: 113 kg

DRUGS (7)
  1. CHANTIX [Suspect]
     Indication: SMOKING CESSATION THERAPY
     Dates: start: 20080101
  2. PALIPERIDONE [Concomitant]
  3. KLONOPIN [Concomitant]
  4. VISTARIL [Concomitant]
  5. NEURONTIN [Concomitant]
  6. GLYBURIDE [Concomitant]
  7. BUSPIRONE [Concomitant]

REACTIONS (2)
  - NAUSEA [None]
  - SLUGGISHNESS [None]
